FAERS Safety Report 8227595-4 (Version None)
Quarter: 2012Q1

REPORT INFORMATION
  Report Type: 
  Country: None (occurrence: None)
  Receive Date: 20120322
  Receipt Date: 20120319
  Transmission Date: 20120608
  Serious: Yes (Other)
  Sender: FDA-Public Use
  Company Number: US-PFIZER INC-2012072232

PATIENT
  Sex: Female

DRUGS (1)
  1. XALKORI [Suspect]
     Dosage: UNK
     Route: 048

REACTIONS (3)
  - CONFUSIONAL STATE [None]
  - NERVOUS SYSTEM DISORDER [None]
  - LETHARGY [None]
